FAERS Safety Report 20434830 (Version 1)
Quarter: 2022Q1

REPORT INFORMATION
  Report Type: Spontaneous
  Country: DE (occurrence: DE)
  Receive Date: 20220206
  Receipt Date: 20220206
  Transmission Date: 20220424
  Serious: Yes (Other)
  Sender: FDA-Public Use
  Company Number: DE-NOVARTISPH-NVSC2022DE021222

PATIENT
  Age: 60 Year
  Sex: Female
  Weight: 67 kg

DRUGS (3)
  1. ESTRADIOL\NORETHINDRONE ACETATE [Suspect]
     Active Substance: ESTRADIOL\NORETHINDRONE ACETATE
     Indication: Product used for unknown indication
     Dosage: UNK, (FORMULATION: HORMONE PATCH)
     Route: 065
  2. ESTRIOL [Suspect]
     Active Substance: ESTRIOL
     Indication: Vulvovaginal discomfort
     Dosage: UNK
     Route: 065
  3. ESTRIOL\LACTOBACILLUS ACIDOPHILUS [Suspect]
     Active Substance: ESTRIOL\LACTOBACILLUS ACIDOPHILUS
     Indication: Vulvovaginal discomfort
     Dosage: UNK
     Route: 065

REACTIONS (3)
  - Postmenopausal haemorrhage [Unknown]
  - Abdominal pain [Unknown]
  - Drug ineffective [Unknown]
